FAERS Safety Report 9747625 (Version 1)
Quarter: 2013Q4

REPORT INFORMATION
  Report Type: Spontaneous
  Country: AT (occurrence: AT)
  Receive Date: 20131212
  Receipt Date: 20131212
  Transmission Date: 20140711
  Serious: Yes (Other)
  Sender: FDA-Public Use
  Company Number: AT-009507513-1312AUT004853

PATIENT
  Age: 53 Year
  Sex: Female
  Weight: 80 kg

DRUGS (2)
  1. JANUMET 50 MG/1000 MG FILMTABLETTEN [Suspect]
     Route: 048
  2. CRESTOR [Concomitant]
     Dosage: UNK

REACTIONS (3)
  - Encephalitis [Unknown]
  - Fatigue [Recovered/Resolved]
  - Myalgia [Recovered/Resolved]
